FAERS Safety Report 18969825 (Version 1)
Quarter: 2021Q1

REPORT INFORMATION
  Report Type: Spontaneous
  Country: RU (occurrence: RU)
  Receive Date: 20210304
  Receipt Date: 20210304
  Transmission Date: 20210420
  Serious: Yes (Life-Threatening)
  Sender: FDA-Public Use
  Company Number: RU-B.BRAUN MEDICAL INC.-2107587

PATIENT
  Age: 66 Year
  Sex: Male
  Weight: 65 kg

DRUGS (2)
  1. SPASMATON [Concomitant]
     Active Substance: FENPIVERINIUM BROMIDE\METAMIZOLE SODIUM\PITOFENONE HYDROCHLORIDE
  2. SODIUM CHLORIDE INJECTION USP 0264?7800?09 [Suspect]
     Active Substance: SODIUM CHLORIDE

REACTIONS (1)
  - Hypersensitivity [None]
